FAERS Safety Report 5650723-1 (Version None)
Quarter: 2008Q1

REPORT INFORMATION
  Report Type: 
  Country: None (occurrence: None)
  Receive Date: 20080303
  Receipt Date: 20080214
  Transmission Date: 20080703
  Serious: Yes (Hospitalization)
  Sender: FDA-Public Use
  Company Number: 2007JP003800

PATIENT
  Age: 48 Year
  Sex: Female
  Weight: 64 kg

DRUGS (14)
  1. PROGRAF [Suspect]
     Indication: RENAL TRANSPLANT
     Dosage: 4 MG, BID, ORAL; 2 MG, BID, ORAL
     Route: 048
     Dates: start: 20031013, end: 20031014
  2. PROGRAF [Suspect]
     Indication: RENAL TRANSPLANT
     Dosage: 4 MG, BID, ORAL; 2 MG, BID, ORAL
     Route: 048
     Dates: start: 20031017, end: 20031021
  3. PROGRAF [Suspect]
     Indication: RENAL TRANSPLANT
     Dosage: 4 MG, BID, ORAL; 2 MG, BID, ORAL
     Route: 048
     Dates: start: 20031023
  4. PROGRAF [Suspect]
     Indication: RENAL TRANSPLANT
     Dosage: 3 MG, CONTINUOUS, IV DRIP
     Route: 041
     Dates: start: 20031015, end: 20031016
  5. SIMULECT [Concomitant]
  6. CELLCEPT [Concomitant]
  7. SOL MEDROL (METHYLPREDNISOLONE, SUCCINATE SODIUM) [Concomitant]
  8. ADALAT TABLET [Concomitant]
  9. MUCOSTA (REBAMIPIDE) TABLET [Concomitant]
  10. DOXAZOSIN MESYLATE [Concomitant]
  11. MALFA (ALUMINIUM HYDROXIDE GEL) [Concomitant]
  12. ISOFLURANE [Concomitant]
  13. FENTANYL CITRATE [Concomitant]
  14. ALDOMET [Concomitant]

REACTIONS (4)
  - BLOOD PRESSURE INCREASED [None]
  - DUODENITIS [None]
  - THROMBOTIC MICROANGIOPATHY [None]
  - URINE OUTPUT DECREASED [None]
